FAERS Safety Report 7528209-9 (Version None)
Quarter: 2011Q2

REPORT INFORMATION
  Report Type: 
  Country: None (occurrence: None)
  Receive Date: 20110607
  Receipt Date: 20100707
  Transmission Date: 20111010
  Serious: No
  Sender: FDA-Public Use
  Company Number: US-ASTRAZENECA-2010SE31662

PATIENT
  Age: 62 Year
  Sex: Female
  Weight: 63.5 kg

DRUGS (7)
  1. SYNTHROID [Concomitant]
     Indication: THYROID DISORDER
  2. LOTENSIN [Concomitant]
     Indication: HYPERTENSION
  3. WELLBUTRIN [Concomitant]
  4. PRILOSEC [Suspect]
     Indication: GASTROOESOPHAGEAL REFLUX DISEASE
     Route: 048
     Dates: start: 20100701
  5. XANAX [Concomitant]
     Indication: ANXIETY
  6. TRIMECLIZINE [Concomitant]
     Indication: HYPERTENSION
  7. M.V.I. [Concomitant]

REACTIONS (3)
  - THROAT IRRITATION [None]
  - THERAPEUTIC RESPONSE DELAYED [None]
  - OROPHARYNGEAL PAIN [None]
